FAERS Safety Report 9605246 (Version 1)
Quarter: 2013Q4

REPORT INFORMATION
  Report Type: Spontaneous
  Country: VE (occurrence: VE)
  Receive Date: 20131008
  Receipt Date: 20131008
  Transmission Date: 20140711
  Serious: Yes (Hospitalization, Other)
  Sender: FDA-Public Use
  Company Number: VE-GLAXOSMITHKLINE-A1044458A

PATIENT
  Age: 51 Year
  Sex: Female
  Weight: 70 kg

DRUGS (1)
  1. LAMICTAL [Suspect]
     Indication: TEMPORAL LOBE EPILEPSY
     Dosage: 150MG PER DAY
     Route: 048
     Dates: start: 20130918, end: 20131002

REACTIONS (4)
  - Transaminases increased [Unknown]
  - Rash [Unknown]
  - Pyrexia [Unknown]
  - Back pain [Unknown]
